FAERS Safety Report 22248226 (Version 1)
Quarter: 2023Q2

REPORT INFORMATION
  Report Type: Other
  Country: US (occurrence: None)
  Receive Date: 20230425
  Receipt Date: 20230425
  Transmission Date: 20230721
  Serious: Yes (Other)
  Sender: FDA-Public Use
  Company Number: US-ROCHE-3214750

PATIENT
  Sex: Male

DRUGS (8)
  1. VALGANCICLOVIR HYDROCHLORIDE [Suspect]
     Active Substance: VALGANCICLOVIR HYDROCHLORIDE
     Indication: Lung transplant
     Route: 048
  2. MORPHINE [Concomitant]
     Active Substance: MORPHINE
  3. LISINOPRIL [Concomitant]
     Active Substance: LISINOPRIL
  4. WARFARIN [Concomitant]
     Active Substance: WARFARIN
  5. AMBIEN [Concomitant]
     Active Substance: ZOLPIDEM TARTRATE
  6. DAPSONE [Concomitant]
     Active Substance: DAPSONE
  7. DILTIAZEM [Concomitant]
     Active Substance: DILTIAZEM
  8. LEVAQUIN [Concomitant]
     Active Substance: LEVOFLOXACIN

REACTIONS (2)
  - Off label use [Unknown]
  - Skin cancer [Unknown]
